FAERS Safety Report 25166125 (Version 2)
Quarter: 2025Q3

REPORT INFORMATION
  Report Type: Spontaneous
  Country: EU (occurrence: EU)
  Receive Date: 20250407
  Receipt Date: 20250703
  Transmission Date: 20251021
  Serious: Yes (Hospitalization)
  Sender: ROCHE
  Company Number: EU-002147023-NVSC2025DE053927

PATIENT
  Sex: Female

DRUGS (4)
  1. LUCENTIS [Suspect]
     Active Substance: RANIBIZUMAB
     Indication: Neovascular age-related macular degeneration
     Dosage: UNK, Q4W (INJECTION /INTRAVITREAL OPERATIVE MEDICATION (IVOM))
     Route: 050
     Dates: start: 20241001
  2. LUCENTIS [Suspect]
     Active Substance: RANIBIZUMAB
     Indication: Retinal vein occlusion
  3. BISOPROLOL [Concomitant]
     Active Substance: BISOPROLOL
     Indication: Product used for unknown indication
     Route: 065
  4. CANDESARTAN [Concomitant]
     Active Substance: CANDESARTAN
     Indication: Product used for unknown indication
     Route: 065

REACTIONS (8)
  - Peripheral swelling [Recovered/Resolved]
  - Pneumothorax [Recovering/Resolving]
  - Herpes zoster [Recovered/Resolved]
  - Eye pain [Recovered/Resolved]
  - Eye haemorrhage [Recovered/Resolved]
  - Visual impairment [Recovering/Resolving]
  - Hypotension [Not Recovered/Not Resolved]
  - Dizziness [Not Recovered/Not Resolved]

NARRATIVE: CASE EVENT DATE: 20241101
